FAERS Safety Report 4629320-2 (Version None)
Quarter: 2005Q2

REPORT INFORMATION
  Report Type: 
  Country: None (occurrence: None)
  Receive Date: 20050405
  Receipt Date: 20050321
  Transmission Date: 20051028
  Serious: Yes (Other)
  Sender: FDA-Public Use
  Company Number: S05-USA-01596-01

PATIENT
  Age: 46 Year
  Sex: Female
  Weight: 65.318 kg

DRUGS (3)
  1. CITALOPRAM HYDROBROMIDE [Suspect]
     Indication: DEPRESSION
     Dosage: 20 MG QD PO
     Route: 048
  2. TEGRETOL [Suspect]
     Indication: CONVULSION
     Dosage: 400 MG QD PO
     Route: 048
  3. CELEXA [Concomitant]

REACTIONS (3)
  - CONVULSION [None]
  - DISEASE RECURRENCE [None]
  - DRUG INTERACTION [None]
